FAERS Safety Report 14607881 (Version 1)
Quarter: 2018Q1

REPORT INFORMATION
  Report Type: Spontaneous
  Country: PL (occurrence: PL)
  Receive Date: 20180307
  Receipt Date: 20180307
  Transmission Date: 20180509
  Serious: Yes (Death)
  Sender: FDA-Public Use
  Company Number: PL-ASTRAZENECA-2018SE25844

PATIENT
  Age: 38 Year
  Sex: Male
  Weight: 96 kg

DRUGS (2)
  1. IBUPROM [Concomitant]
     Active Substance: IBUPROFEN
  2. QUETIAPINE. [Suspect]
     Active Substance: QUETIAPINE
     Indication: BIPOLAR DISORDER
     Route: 048
     Dates: start: 20151031, end: 20151104

REACTIONS (13)
  - Screaming [Fatal]
  - Disturbance in attention [Fatal]
  - Fear [Fatal]
  - Completed suicide [Fatal]
  - Anxiety [Fatal]
  - Muscle spasms [Fatal]
  - Agitation [Fatal]
  - Lethargy [Fatal]
  - Dyspnoea [Fatal]
  - Mood altered [Fatal]
  - Abnormal behaviour [Fatal]
  - Crying [Fatal]
  - Aggression [Fatal]

NARRATIVE: CASE EVENT DATE: 20151105
